FAERS Safety Report 12412188 (Version 2)
Quarter: 2016Q2

REPORT INFORMATION
  Report Type: Report from Study
  Country: US (occurrence: US)
  Receive Date: 20160527
  Receipt Date: 20160620
  Transmission Date: 20160815
  Serious: Yes (Hospitalization, Other)
  Sender: FDA-Public Use
  Company Number: US-BAYER-2016-098538

PATIENT
  Age: 84 Year
  Sex: Female
  Weight: 59.41 kg

DRUGS (3)
  1. ADEMPAS [Suspect]
     Active Substance: RIOCIGUAT
     Indication: PULMONARY ARTERIAL HYPERTENSION
     Dosage: UNK
     Dates: start: 20160107
  2. WARFARIN [Concomitant]
     Active Substance: WARFARIN
  3. ADEMPAS [Suspect]
     Active Substance: RIOCIGUAT
     Indication: PULMONARY ARTERIAL HYPERTENSION
     Dosage: 1.5 MG, TID
     Route: 048

REACTIONS (7)
  - Fall [Unknown]
  - Contusion [Unknown]
  - Pneumonia [Unknown]
  - Vertigo [Unknown]
  - Hip surgery [None]
  - Dizziness [Unknown]
  - Cystitis [Unknown]

NARRATIVE: CASE EVENT DATE: 20160510
